FAERS Safety Report 5299201-2 (Version None)
Quarter: 2007Q2

REPORT INFORMATION
  Report Type: 
  Country: None (occurrence: None)
  Receive Date: 20070417
  Receipt Date: 20070409
  Transmission Date: 20071010
  Serious: Yes (Other)
  Sender: FDA-Public Use
  Company Number: US-JNJFOC-20070402163

PATIENT
  Sex: Female
  Weight: 107.96 kg

DRUGS (5)
  1. TYLENOL (CAPLET) [Suspect]
  2. TYLENOL (CAPLET) [Suspect]
     Indication: HEADACHE
  3. DILAUDID [Concomitant]
  4. DULCOLAX [Concomitant]
  5. PROTONIX [Concomitant]

REACTIONS (5)
  - DIPLOPIA [None]
  - DYSPEPSIA [None]
  - MEDICATION TAMPERING [None]
  - VISION BLURRED [None]
  - VOMITING [None]
